FAERS Safety Report 9761823 (Version 1)
Quarter: 2013Q4

REPORT INFORMATION
  Report Type: Spontaneous
  Country: US (occurrence: US)
  Receive Date: 20131216
  Receipt Date: 20131216
  Transmission Date: 20140711
  Serious: No
  Sender: FDA-Public Use
  Company Number: US-BIOGENIDEC-2013BI104339

PATIENT
  Age: 53 Year
  Sex: Female

DRUGS (11)
  1. TECFIDERA [Suspect]
     Indication: MULTIPLE SCLEROSIS
     Route: 048
     Dates: start: 20130821
  2. CYMBALTA [Concomitant]
  3. SYNTHROID [Concomitant]
  4. GABAPENTIN [Concomitant]
  5. OXYCODONE [Concomitant]
  6. TYLENOL [Concomitant]
  7. ADVIL [Concomitant]
  8. WELLBUTRIN XL [Concomitant]
  9. ALLEVE [Concomitant]
  10. CONCERTA [Concomitant]
  11. VITAMIN D [Concomitant]

REACTIONS (1)
  - Gastroenteritis [Not Recovered/Not Resolved]
